FAERS Safety Report 23638516 (Version 1)
Quarter: 2024Q1

REPORT INFORMATION
  Report Type: Spontaneous
  Country: FR (occurrence: FR)
  Receive Date: 20240315
  Receipt Date: 20240315
  Transmission Date: 20240410
  Serious: Yes (Hospitalization)
  Sender: FDA-Public Use
  Company Number: FR-SUN PHARMACEUTICAL INDUSTRIES LTD-2024RR-436803

PATIENT
  Age: 34 Year
  Sex: Female

DRUGS (2)
  1. IBUPROFEN [Suspect]
     Active Substance: IBUPROFEN
     Indication: Pyrexia
     Dosage: 2 DOSAGE FORM, DAILY
     Route: 048
     Dates: start: 20231025, end: 20231027
  2. KYLEENA [Concomitant]
     Active Substance: LEVONORGESTREL
     Indication: Intrauterine contraception
     Dosage: 19.5 MILLIGRAM
     Route: 015
     Dates: start: 2019, end: 20231020

REACTIONS (3)
  - Condition aggravated [Recovering/Resolving]
  - Pneumonia staphylococcal [Recovering/Resolving]
  - Endocarditis staphylococcal [Recovering/Resolving]
